FAERS Safety Report 6389605-9 (Version None)
Quarter: 2009Q4

REPORT INFORMATION
  Report Type: 
  Country: None (occurrence: None)
  Receive Date: 20091002
  Receipt Date: 20091002
  Transmission Date: 20100525
  Serious: Yes (Hospitalization)
  Sender: FDA-Public Use
  Company Number: None

PATIENT
  Age: 47 Year
  Sex: Male

DRUGS (1)
  1. PHENYTOIN [Suspect]
     Indication: CONVULSION
     Dosage: 200 MG TID PO
     Route: 048
     Dates: start: 20070820

REACTIONS (4)
  - ANTICONVULSANT DRUG LEVEL INCREASED [None]
  - DIZZINESS [None]
  - GAIT DISTURBANCE [None]
  - NYSTAGMUS [None]
